FAERS Safety Report 15891054 (Version 1)
Quarter: 2019Q1

REPORT INFORMATION
  Report Type: Spontaneous
  Country: JP (occurrence: JP)
  Receive Date: 20190130
  Receipt Date: 20190130
  Transmission Date: 20190417
  Serious: Yes (Death, Hospitalization)
  Sender: FDA-Public Use
  Company Number: JP-MYLANLABS-2019M1008238

PATIENT
  Age: 7 Decade
  Sex: Female

DRUGS (3)
  1. ABATACEPT [Suspect]
     Active Substance: ABATACEPT
     Indication: RHEUMATOID ARTHRITIS
     Dosage: DISCONTINUED DUE TO PROGRESSION OF HEPATOCELLULAR CARCINOMA
     Route: 065
  2. METHOTREXATE. [Suspect]
     Active Substance: METHOTREXATE
     Indication: RHEUMATOID ARTHRITIS
     Dosage: SINCE 5 YEARS
     Route: 065
  3. BUCILLAMINE [Concomitant]
     Active Substance: BUCILLAMINE
     Indication: RHEUMATOID ARTHRITIS
     Dosage: SINCE 4 YEARS
     Route: 065

REACTIONS (7)
  - Hepatocellular carcinoma [Fatal]
  - Metastases to lung [Fatal]
  - Hypovolaemic shock [Fatal]
  - Liver carcinoma ruptured [Fatal]
  - Metastases to pelvis [Fatal]
  - Haemorrhagic ascites [Fatal]
  - Hepatic cirrhosis [Not Recovered/Not Resolved]
